FAERS Safety Report 24773274 (Version 3)
Quarter: 2025Q1

REPORT INFORMATION
  Report Type: Report from Study
  Country: BG (occurrence: BG)
  Receive Date: 20241225
  Receipt Date: 20250101
  Transmission Date: 20250408
  Serious: Yes (Death)
  Sender: ROCHE
  Company Number: BG-BoehringerIngelheim-2024-BI-069700

PATIENT
  Age: 81 Year
  Sex: Female

DRUGS (1)
  1. ALTEPLASE [Suspect]
     Active Substance: ALTEPLASE
     Indication: Pulmonary embolism
     Route: 042

REACTIONS (3)
  - Melaena [Fatal]
  - Off label use [Unknown]
  - Haemoglobin decreased [Fatal]
